FAERS Safety Report 19510644 (Version 1)
Quarter: 2021Q3

REPORT INFORMATION
  Report Type: Spontaneous
  Country: DE (occurrence: DE)
  Receive Date: 20210709
  Receipt Date: 20210709
  Transmission Date: 20211014
  Serious: Yes (Hospitalization)
  Sender: FDA-Public Use
  Company Number: DE-TEVA-2021-DE-1929891

PATIENT
  Age: 67 Year
  Sex: Male

DRUGS (13)
  1. PANTOPRAZOL [Concomitant]
     Active Substance: PANTOPRAZOLE SODIUM
     Dosage: 80 MILLIGRAM DAILY;  1?0?1?0,
     Route: 048
  2. OXALIPLATIN. [Suspect]
     Active Substance: OXALIPLATIN
     Dosage: ACCORDING TO SCHEME,
     Route: 042
  3. METOCLOPRAMID [Concomitant]
     Active Substance: METOCLOPRAMIDE
     Dosage: UNIT DOSE :30 MG ,10 MG, 1?1?1?0,
     Route: 048
  4. FOLIC ACID. [Suspect]
     Active Substance: FOLIC ACID
     Dosage: ACCORDING TO THE SCHEME,
     Route: 042
  5. ENOXAPARIN [Concomitant]
     Active Substance: ENOXAPARIN
     Dosage: .4 ML DAILY;  0?0?1?0
     Route: 058
  6. LACTULOSE. [Concomitant]
     Active Substance: LACTULOSE
     Dosage: 30 ML DAILY;  1?0?0?0, JUICE
     Route: 048
  7. BUDESONID/FORMOTEROL [Concomitant]
     Active Substance: BUDESONIDE\FORMOTEROL
     Dosage: 2 DOSAGE FORMS DAILY; 9 | 320 UG, 1?0?1?0, METERED DOSE INHALER
     Route: 055
  8. ALGELDRAT [Concomitant]
     Dosage: 230 MG, IF NECESSARY, SUSPENSION
     Route: 048
  9. BUTYLSCOPOLAMIN [Concomitant]
     Dosage: UNIT DOSE :30 MG ,,10 MG, 1?1?1?0,
     Route: 048
  10. ALLOPURINOL. [Concomitant]
     Active Substance: ALLOPURINOL
     Dosage: 100 MILLIGRAM DAILY;  0?0?1?0,
     Route: 048
  11. METAMIZOL [Concomitant]
     Active Substance: METAMIZOLE SODIUM
     Dosage: 40 GTT DAILY;  0?0?1?0, DROPS
     Route: 048
  12. FLUOROURACIL. [Suspect]
     Active Substance: FLUOROURACIL
     Dosage: ACCORDING TO SCHEME
     Route: 042
  13. MACROGOL [Concomitant]
     Active Substance: POLYETHYLENE GLYCOLS
     Dosage: 3 DOSAGE FORMS DAILY; 1?1?1?0,
     Route: 048

REACTIONS (1)
  - Implant site infection [Unknown]

NARRATIVE: CASE EVENT DATE: 20201001
